FAERS Safety Report 11147736 (Version 2)
Quarter: 2015Q3

REPORT INFORMATION
  Report Type: Spontaneous
  Country: US (occurrence: US)
  Receive Date: 20150529
  Receipt Date: 20150703
  Transmission Date: 20151125
  Serious: Yes (Hospitalization)
  Sender: FDA-Public Use
  Company Number: US-009507513-1505USA012792

PATIENT
  Age: 68 Year
  Sex: Male
  Weight: 100 kg

DRUGS (15)
  1. ZERBAXA [Suspect]
     Active Substance: CEFTOLOZANE SULFATE\TAZOBACTAM SODIUM
     Indication: ACINETOBACTER INFECTION
     Dosage: STRENGTH 1G/0.5G, DAILY DOSE 4.5G,Q8H
     Route: 041
     Dates: start: 20150428
  2. FLUOXETINE [Concomitant]
     Active Substance: FLUOXETINE\FLUOXETINE HYDROCHLORIDE
  3. AMIODARONE [Concomitant]
     Active Substance: AMIODARONE
  4. PYRIDOXINE [Concomitant]
     Active Substance: PYRIDOXINE
  5. AMITRIPTYLINE HYDROCHLORIDE. [Concomitant]
     Active Substance: AMITRIPTYLINE HYDROCHLORIDE
  6. COZAAR [Concomitant]
     Active Substance: LOSARTAN POTASSIUM
  7. PRAVASTATIN [Concomitant]
     Active Substance: PRAVASTATIN\PRAVASTATIN SODIUM
  8. ZOFRAN [Concomitant]
     Active Substance: ONDANSETRON HYDROCHLORIDE
  9. ASPIRIN. [Concomitant]
     Active Substance: ASPIRIN
  10. NAPROXEN. [Concomitant]
     Active Substance: NAPROXEN
  11. TOPAMAX [Concomitant]
     Active Substance: TOPIRAMATE
  12. DOXYCYCLINE. [Concomitant]
     Active Substance: DOXYCYCLINE
  13. VITAMINS (UNSPECIFIED) [Concomitant]
     Active Substance: VITAMINS
  14. LOVAZA [Concomitant]
     Active Substance: OMEGA-3-ACID ETHYL ESTERS
  15. TUMS [Concomitant]
     Active Substance: CALCIUM CARBONATE

REACTIONS (1)
  - Chest pain [Recovered/Resolved]

NARRATIVE: CASE EVENT DATE: 20150521
